FAERS Safety Report 8412851-7 (Version None)
Quarter: 2012Q2

REPORT INFORMATION
  Report Type: 
  Country: None (occurrence: None)
  Receive Date: 20120605
  Receipt Date: 20120525
  Transmission Date: 20120825
  Serious: No
  Sender: FDA-Public Use
  Company Number: US-AMGEN-USASP2012028075

PATIENT
  Age: 68 Year
  Sex: Female

DRUGS (4)
  1. ENBREL [Suspect]
     Indication: RHEUMATOID ARTHRITIS
     Dosage: 50 MG, QWK
     Dates: start: 20120424
  2. ZOFRAN [Concomitant]
     Dosage: 8 MG, UNK
  3. METHOTREXATE [Concomitant]
     Dosage: 22.5 MG, QWK
     Route: 048
  4. FOLIC ACID [Concomitant]
     Dosage: 3 PILLS PER DAY

REACTIONS (5)
  - NAUSEA [None]
  - ORAL DISCOMFORT [None]
  - DECREASED APPETITE [None]
  - VOMITING [None]
  - DYSGEUSIA [None]
